FAERS Safety Report 6647085-X (Version None)
Quarter: 2010Q1

REPORT INFORMATION
  Report Type: 
  Country: None (occurrence: None)
  Receive Date: 20100323
  Receipt Date: 20100303
  Transmission Date: 20100710
  Serious: Yes (Hospitalization, Other)
  Sender: FDA-Public Use
  Company Number: DE-BAYER-200937651GPV

PATIENT
  Age: 74 Year
  Sex: Female
  Weight: 54 kg

DRUGS (7)
  1. ACETYLSALICYLIC ACID OR PLACEBO [Suspect]
     Indication: CARDIOVASCULAR EVENT PROPHYLAXIS
     Route: 048
     Dates: start: 20090401, end: 20090905
  2. SIMVASTATIN [Concomitant]
     Indication: HYPERCHOLESTEROLAEMIA
     Route: 048
     Dates: start: 20090225
  3. XYLOCAINE [Concomitant]
     Indication: ANGIOGRAM
     Route: 042
     Dates: start: 20090905, end: 20090905
  4. CLOPIDOGREL [Concomitant]
     Indication: ARTERIOSCLEROSIS CORONARY ARTERY
     Route: 048
     Dates: start: 20090905
  5. ACETYLSALICYLIC ACID [Concomitant]
     Indication: CORONARY ARTERY DISEASE
     Route: 048
     Dates: start: 20090905
  6. HEPARIN [Concomitant]
     Indication: ANGIOGRAM
     Route: 042
     Dates: start: 20090905, end: 20090906
  7. REOPRO [Concomitant]
     Indication: ANGIOGRAM
     Route: 042
     Dates: start: 20090905, end: 20090906

REACTIONS (4)
  - ANGINA PECTORIS [None]
  - CORONARY ARTERY DISEASE [None]
  - HYPERLIPIDAEMIA [None]
  - RETROPERITONEAL HAEMORRHAGE [None]
